FAERS Safety Report 25575313 (Version 6)
Quarter: 2025Q4

REPORT INFORMATION
  Report Type: Spontaneous
  Country: CH (occurrence: CH)
  Receive Date: 20250718
  Receipt Date: 20251107
  Transmission Date: 20260118
  Serious: Yes (Hospitalization, Other)
  Sender: IPSEN BIOPHARMACEUTICALS, INC.
  Company Number: CH-IPSEN Group, Research and Development-2025-16995

PATIENT
  Age: 5 Year
  Sex: Male
  Weight: 17 kg

DRUGS (7)
  1. BYLVAY [Suspect]
     Active Substance: ODEVIXIBAT
     Indication: Progressive familial intrahepatic cholestasis
     Dosage: ROUTE: GASTROSTOMY
     Dates: start: 202308, end: 20241009
  2. BYLVAY [Suspect]
     Active Substance: ODEVIXIBAT
     Indication: Off label use
     Dates: start: 20241023
  3. URSODIOL [Concomitant]
     Active Substance: URSODIOL
     Indication: Progressive familial intrahepatic cholestasis
     Dosage: 150 BID
     Dates: start: 2019
  4. PHYTONADIONE [Concomitant]
     Active Substance: PHYTONADIONE
     Dates: start: 2019
  5. SODIUM BICARBONATE [Concomitant]
     Active Substance: SODIUM BICARBONATE
     Dosage: 130MG, BID
  6. Tocofersolan [Concomitant]
     Dosage: 170MG QD
     Dates: start: 2019
  7. calciumD3 [Concomitant]
     Dosage: 500MG, QD

REACTIONS (6)
  - Portal hypertension [Not Recovered/Not Resolved]
  - Colitis [Not Recovered/Not Resolved]
  - Autoimmune hepatitis [Recovered/Resolved]
  - Pancreatitis [Recovered/Resolved]
  - Blood fibrinogen increased [Unknown]
  - Off label use [Unknown]

NARRATIVE: CASE EVENT DATE: 20230101
